FAERS Safety Report 8558954-8 (Version None)
Quarter: 2012Q3

REPORT INFORMATION
  Report Type: 
  Country: None (occurrence: None)
  Receive Date: 20120802
  Receipt Date: 20120726
  Transmission Date: 20120928
  Serious: No
  Sender: FDA-Public Use
  Company Number: JP-009507513-1207JPN001345

PATIENT

DRUGS (28)
  1. BETAMETHASONE VALERATE [Suspect]
     Dosage: UNK
     Dates: start: 20120410, end: 20120507
  2. PLAVIX [Concomitant]
     Dosage: 50 MG, QD
     Route: 048
     Dates: start: 20120125, end: 20120512
  3. LEBENIN [Concomitant]
     Dosage: 3 G, QD
     Route: 048
     Dates: start: 20120402, end: 20120428
  4. YUNASUPIN [Concomitant]
     Dosage: 4.5 G, QD
     Dates: start: 20120326, end: 20120405
  5. HIRUDOID [Concomitant]
     Dosage: UNK
     Dates: start: 20120515
  6. ALDACTONE [Concomitant]
     Dosage: 50 MG, QD
     Route: 048
     Dates: start: 20120128
  7. ASPARA K [Concomitant]
     Dosage: 999 MG, QD
     Route: 048
     Dates: start: 20120402, end: 20120429
  8. NIZORAL [Concomitant]
     Dosage: UNK
     Dates: start: 20120410, end: 20120507
  9. HIRUDOID [Concomitant]
     Indication: ERYTHEMA MULTIFORME
     Dosage: UNK
     Dates: start: 20120501
  10. PREDNISOLONE [Concomitant]
     Dosage: 20 MG, QD
     Route: 048
     Dates: start: 20120506, end: 20120528
  11. FLAGYL [Suspect]
     Indication: PSEUDOMEMBRANOUS COLITIS
     Dosage: 1000 MG, UNK
     Route: 048
     Dates: start: 20120403, end: 20120404
  12. ZYVOX [Suspect]
     Dosage: 1200 MG, UNK
     Dates: start: 20120502, end: 20120515
  13. DORNER [Concomitant]
     Dosage: 60 MICROGRAM, QD
     Route: 048
     Dates: start: 20120406, end: 20120512
  14. TRICHLORMETHIAZIDE [Concomitant]
     Dosage: 1 MG, QD
     Route: 048
     Dates: start: 20120208
  15. OLOPATADINE HCL [Concomitant]
     Dosage: 10 MG, QD
     Dates: start: 20120430, end: 20120528
  16. METHYLPREDNISOLONE SODIUM SUCCINATE [Concomitant]
     Dosage: 40 MG, QD
     Dates: start: 20120506, end: 20120506
  17. FLAGYL [Suspect]
     Dosage: 1000 UNK, UNK
     Route: 048
     Dates: start: 20120429, end: 20120512
  18. CLOBETASOL PROPIONATE [Concomitant]
     Indication: ERYTHEMA MULTIFORME
     Dosage: UNK
     Dates: start: 20120501
  19. VANCOMYCIN HYDROCHLORIDE [Suspect]
     Dosage: 1 MG, UNK
     Dates: start: 20120416, end: 20120429
  20. PLAVIX [Concomitant]
     Dosage: 50 MG, QD
     Dates: start: 20120517
  21. DORNER [Concomitant]
     Dosage: 60 MICROGRAM, QD
     Dates: start: 20120517
  22. LEBENIN [Concomitant]
     Dosage: 3 G, QD
     Dates: start: 20120430
  23. ASPARA K [Concomitant]
     Dosage: 999 MG, QD
     Dates: start: 20120501, end: 20120528
  24. MYSER (DIFLUPREDNATE) [Concomitant]
     Dosage: UNK
     Dates: start: 20120515
  25. PYDOXAL [Concomitant]
     Dosage: 30 MG, QD
     Dates: start: 20120410, end: 20120507
  26. GENTAMICIN SULFATE [Concomitant]
     Dosage: 80 MG, QD
     Dates: start: 20120326, end: 20120405
  27. VANCOMYCIN HYDROCHLORIDE [Concomitant]
     Dosage: 2 MG, QD
     Route: 048
     Dates: start: 20120405, end: 20120416
  28. MYSER (DIFLUPREDNATE) [Concomitant]
     Dosage: UNK
     Dates: start: 20120405

REACTIONS (8)
  - NO ADVERSE EVENT [None]
  - SEPSIS [None]
  - MYOCARDIAL INFARCTION [None]
  - CARDIOGENIC SHOCK [None]
  - PLATELET COUNT DECREASED [None]
  - TOXIC SKIN ERUPTION [None]
  - ERYTHEMA MULTIFORME [None]
  - ATRIOVENTRICULAR BLOCK COMPLETE [None]
